FAERS Safety Report 21821330 (Version 1)
Quarter: 2023Q1

REPORT INFORMATION
  Report Type: Spontaneous
  Country: SE (occurrence: SE)
  Receive Date: 20230105
  Receipt Date: 20230105
  Transmission Date: 20230418
  Serious: Yes (Death)
  Sender: FDA-Public Use
  Company Number: None

PATIENT
  Age: 67 Year
  Sex: Female

DRUGS (1)
  1. KADCYLA [Suspect]
     Active Substance: ADO-TRASTUZUMAB EMTANSINE
     Indication: Breast cancer
     Dosage: DOSAGE 3.6 MG/KG?MOST RECENT DOSE OF TRASTUZUMAB EMTANSINE: 15/SEP/2022
     Route: 065
     Dates: start: 2014

REACTIONS (2)
  - Gastrointestinal perforation [Fatal]
  - Inflammation [Fatal]

NARRATIVE: CASE EVENT DATE: 20221024
